FAERS Safety Report 6928178-6 (Version None)
Quarter: 2010Q3

REPORT INFORMATION
  Report Type: 
  Country: None (occurrence: None)
  Receive Date: 20100812
  Receipt Date: 20100809
  Transmission Date: 20110219
  Serious: Yes (Other)
  Sender: FDA-Public Use
  Company Number: GRT 2010-14209

PATIENT
  Age: 42 Year
  Sex: Male

DRUGS (2)
  1. LIDOCAINE HCL [Suspect]
     Indication: BACK PAIN
     Dosage: 1 PATCH A DALY
     Dates: start: 20100501
  2. CAPTOPRIL [Concomitant]

REACTIONS (3)
  - ACCIDENTAL EXPOSURE [None]
  - EYE BURNS [None]
  - KERATITIS [None]
